FAERS Safety Report 16792291 (Version 2)
Quarter: 2021Q3

REPORT INFORMATION
  Report Type: Spontaneous
  Country: US (occurrence: US)
  Receive Date: 20190910
  Receipt Date: 20210712
  Transmission Date: 20211014
  Serious: Yes (Death, Other)
  Sender: FDA-Public Use
  Company Number: US-TEVA-2019-US-1105914

PATIENT
  Age: 83 Year
  Sex: Male
  Weight: 96 kg

DRUGS (1)
  1. VALSARTAN SOLCO [Suspect]
     Active Substance: VALSARTAN
     Indication: HYPERTENSION
     Dosage: 160 MILLIGRAM DAILY;
     Route: 048
     Dates: start: 20170925, end: 20180621

REACTIONS (2)
  - Bladder cancer [Not Recovered/Not Resolved]
  - Colon cancer stage III [Fatal]
